FAERS Safety Report 12840569 (Version 2)
Quarter: 2017Q1

REPORT INFORMATION
  Report Type: Spontaneous
  Country: US (occurrence: US)
  Receive Date: 20161012
  Receipt Date: 20170222
  Transmission Date: 20170428
  Serious: Yes (Other)
  Sender: FDA-Public Use
  Company Number: US-TEVA-699680USA

PATIENT
  Sex: Female

DRUGS (1)
  1. COPAXONE [Suspect]
     Active Substance: GLATIRAMER ACETATE
     Dosage: FORM STRENGTH: UNKNOWN

REACTIONS (6)
  - Dyspnoea [Unknown]
  - Vomiting [Unknown]
  - Anaphylactic reaction [Unknown]
  - Injection site reaction [Unknown]
  - Product physical issue [Unknown]
  - Injection site extravasation [Unknown]
